FAERS Safety Report 5731079-2 (Version None)
Quarter: 2008Q2

REPORT INFORMATION
  Report Type: 
  Country: None (occurrence: None)
  Receive Date: 20080507
  Receipt Date: 20080429
  Transmission Date: 20081010
  Serious: Yes (Hospitalization)
  Sender: FDA-Public Use
  Company Number: US-ABBOTT-08P-163-0449538-00

PATIENT
  Sex: Female
  Weight: 75.818 kg

DRUGS (6)
  1. HUMIRA [Suspect]
     Indication: RHEUMATOID ARTHRITIS
     Route: 058
     Dates: start: 20070615
  2. HUMIRA [Suspect]
     Dates: start: 20070615
  3. METHOTREXATE [Concomitant]
     Indication: RHEUMATOID ARTHRITIS
     Route: 048
     Dates: start: 20030101
  4. PREMADONE [Concomitant]
     Indication: TREMOR
     Route: 048
     Dates: start: 20070801
  5. PHENYTOIN [Concomitant]
     Indication: CONVULSION
     Route: 048
     Dates: start: 20070701
  6. ESTROGENS CONJUGATED [Concomitant]
     Indication: HORMONE THERAPY
     Route: 048
     Dates: start: 19980101

REACTIONS (3)
  - ACCIDENTAL NEEDLE STICK [None]
  - GASTRIC ULCER [None]
  - MALAISE [None]
